FAERS Safety Report 20892348 (Version 1)
Quarter: 2022Q2

REPORT INFORMATION
  Report Type: Spontaneous
  Country: PT (occurrence: PT)
  Receive Date: 20220530
  Receipt Date: 20220530
  Transmission Date: 20220721
  Serious: Yes (Life-Threatening, Hospitalization, Other)
  Sender: FDA-Public Use
  Company Number: PT-CELGENE-PRT-20220107664

PATIENT
  Age: 7 Year
  Sex: Male

DRUGS (7)
  1. AZACITIDINE [Suspect]
     Active Substance: AZACITIDINE
     Indication: Myelodysplastic syndrome
     Dosage: FREQUENCY TEXT: NOT PROVIDED
     Route: 065
  2. AZACITIDINE [Suspect]
     Active Substance: AZACITIDINE
     Dosage: FREQUENCY TEXT: 7 IN CYCLES OF 28DAYS
     Route: 065
  3. DEXAMETHASONE [Suspect]
     Active Substance: DEXAMETHASONE
     Indication: Myelodysplastic syndrome
     Dosage: 6 MG/M2, QD
     Route: 065
  4. CEFTRIAXONE [Concomitant]
     Active Substance: CEFTRIAXONE
     Indication: Product used for unknown indication
     Dosage: FREQUENCY TEXT: NOT PROVIDED
     Route: 065
  5. CEFTRIAXONE [Concomitant]
     Active Substance: CEFTRIAXONE
     Indication: Antibiotic therapy
     Dosage: UNK
     Route: 065
  6. AMOXICILLIN\CLAVULANIC ACID [Concomitant]
     Active Substance: AMOXICILLIN\CLAVULANIC ACID
     Indication: Antibiotic therapy
     Dosage: FREQUENCY TEXT: NOT PROVIDED
     Route: 065
  7. METHYLPREDNISOLONE [Concomitant]
     Active Substance: METHYLPREDNISOLONE
     Indication: Product used for unknown indication
     Dosage: FREQUENCY TEXT: NOT PROVIDED
     Route: 065

REACTIONS (1)
  - Pericardial effusion [Recovered/Resolved]
